FAERS Safety Report 8380862-6 (Version None)
Quarter: 2012Q2

REPORT INFORMATION
  Report Type: 
  Country: None (occurrence: None)
  Receive Date: 20120523
  Receipt Date: 20120516
  Transmission Date: 20120825
  Serious: Yes (Hospitalization, Other)
  Sender: FDA-Public Use
  Company Number: US-MERCK-1110USA02434

PATIENT
  Age: 72 Year
  Sex: Female

DRUGS (4)
  1. BONIVA [Suspect]
     Indication: OSTEOPENIA
     Route: 048
     Dates: start: 20080101, end: 20101101
  2. FOSAMAX [Suspect]
     Indication: OSTEOPENIA
     Route: 048
     Dates: start: 20020101, end: 20080301
  3. MORPHINE [Concomitant]
     Indication: CROHN'S DISEASE
     Route: 065
  4. VITAMINS (UNSPECIFIED) [Concomitant]
     Route: 065
     Dates: start: 19700101

REACTIONS (15)
  - ANXIETY [None]
  - LUNG HYPERINFLATION [None]
  - OSTEOARTHRITIS [None]
  - CROHN'S DISEASE [None]
  - SPINAL OSTEOARTHRITIS [None]
  - BENIGN BREAST NEOPLASM [None]
  - HYPERTENSION [None]
  - DEPRESSION [None]
  - FEMUR FRACTURE [None]
  - HYPERCHOLESTEROLAEMIA [None]
  - UTERINE DISORDER [None]
  - LOW TURNOVER OSTEOPATHY [None]
  - FEMORAL NECK FRACTURE [None]
  - INSOMNIA [None]
  - LIMB ASYMMETRY [None]
